FAERS Safety Report 10172525 (Version 1)
Quarter: 2014Q2

REPORT INFORMATION
  Report Type: Spontaneous
  Country: BE (occurrence: BE)
  Receive Date: 20140515
  Receipt Date: 20140515
  Transmission Date: 20141212
  Serious: Yes (Other)
  Sender: FDA-Public Use
  Company Number: BE-SA-2014SA058708

PATIENT
  Sex: Female

DRUGS (2)
  1. PLERIXAFOR [Suspect]
     Indication: HAEMATOPOIETIC STEM CELL MOBILISATION
     Route: 065
  2. NEUPOGEN [Concomitant]
     Indication: LYMPHOMA

REACTIONS (1)
  - Capillary leak syndrome [Recovered/Resolved]
